FAERS Safety Report 17971935 (Version 1)
Quarter: 2020Q3

REPORT INFORMATION
  Report Type: Spontaneous
  Country: US (occurrence: US)
  Receive Date: 20200702
  Receipt Date: 20200702
  Transmission Date: 20201103
  Serious: No
  Sender: FDA-Public Use
  Company Number: US-DRREDDYS-USA/USA/20/0124550

PATIENT
  Age: 67 Year
  Sex: Male
  Weight: 96.75 kg

DRUGS (1)
  1. HABITROL [Suspect]
     Active Substance: NICOTINE
     Indication: TOBACCO USER
     Route: 062
     Dates: start: 20200620

REACTIONS (2)
  - Nicotine dependence [Not Recovered/Not Resolved]
  - Treatment noncompliance [Not Recovered/Not Resolved]
